FAERS Safety Report 17608773 (Version 1)
Quarter: 2020Q2

REPORT INFORMATION
  Report Type: Spontaneous
  Country: US (occurrence: US)
  Receive Date: 20200401
  Receipt Date: 20200401
  Transmission Date: 20200713
  Serious: No
  Sender: FDA-Public Use
  Company Number: US-AMGEN-USASP2020052194

PATIENT
  Sex: Female

DRUGS (3)
  1. MVASI [Suspect]
     Active Substance: BEVACIZUMAB-AWWB
     Indication: OVARIAN CLEAR CELL CARCINOMA
     Dosage: 700 MILLIGRAM, Q2WK
     Route: 065
     Dates: start: 20200306
  2. DOXIL [DICLOXACILLIN SODIUM MONOHYDRATE] [Concomitant]
     Dosage: UNK
  3. MVASI [Suspect]
     Active Substance: BEVACIZUMAB-AWWB
     Dosage: UNK
     Route: 065

REACTIONS (2)
  - Product use in unapproved indication [Unknown]
  - Laboratory test abnormal [Unknown]
